FAERS Safety Report 7303854-4 (Version None)
Quarter: 2011Q1

REPORT INFORMATION
  Report Type: 
  Country: None (occurrence: None)
  Receive Date: 20110221
  Receipt Date: 20110214
  Transmission Date: 20110831
  Serious: Yes (Death, Other)
  Sender: FDA-Public Use
  Company Number: A0912362A

PATIENT
  Age: 89 Year
  Sex: Female
  Weight: 75 kg

DRUGS (5)
  1. ATROVENT [Concomitant]
     Route: 055
  2. KEFAZOL [Concomitant]
     Dosage: 1G THREE TIMES PER DAY
     Route: 042
  3. ARIXTRA [Suspect]
     Indication: PROPHYLAXIS
     Dosage: 2.5MG PER DAY
     Route: 058
  4. DIPYRONE [Concomitant]
  5. BEROTEC [Concomitant]
     Route: 055

REACTIONS (8)
  - INTERNATIONAL NORMALISED RATIO ABNORMAL [None]
  - MULTI-ORGAN FAILURE [None]
  - SEPTIC SHOCK [None]
  - CONTUSION [None]
  - PNEUMONIA [None]
  - HAEMORRHAGE [None]
  - SEPSIS [None]
  - COAGULOPATHY [None]
